FAERS Safety Report 7302206-0 (Version None)
Quarter: 2011Q1

REPORT INFORMATION
  Report Type: 
  Country: None (occurrence: None)
  Receive Date: 20110218
  Receipt Date: 20110214
  Transmission Date: 20110831
  Serious: Yes (Other)
  Sender: FDA-Public Use
  Company Number: TR-ROXANE LABORATORIES, INC.-2011-RO-00170RO

PATIENT
  Age: 20 Year
  Sex: Female

DRUGS (5)
  1. LITHIUM CARBONATE [Suspect]
     Indication: BIPOLAR DISORDER
     Dosage: 1200 MG
  2. LORAZEPAM [Suspect]
     Dosage: 2.5 MG
     Route: 048
  3. ARIPIPRAZOLE [Suspect]
     Dosage: 10 MG
  4. ARIPIPRAZOLE [Suspect]
     Indication: BIPOLAR DISORDER
     Dosage: 15 MG
  5. ARIPIPRAZOLE [Suspect]
     Dosage: 5 MG

REACTIONS (3)
  - PARKINSONISM [None]
  - AKATHISIA [None]
  - BRUXISM [None]
